FAERS Safety Report 25711232 (Version 2)
Quarter: 2025Q3

REPORT INFORMATION
  Report Type: Spontaneous
  Country: US (occurrence: US)
  Receive Date: 20250821
  Receipt Date: 20250909
  Transmission Date: 20251020
  Serious: Yes (Hospitalization)
  Sender: TEVA
  Company Number: US-TEVA-VS-3362729

PATIENT
  Age: 62 Year
  Sex: Male

DRUGS (6)
  1. SCOPOLAMINE [Suspect]
     Active Substance: SCOPOLAMINE
     Indication: Adenocarcinoma
     Route: 065
  2. SCOPOLAMINE [Suspect]
     Active Substance: SCOPOLAMINE
     Indication: Lung adenocarcinoma
  3. LEVOFLOXACIN [Suspect]
     Active Substance: LEVOFLOXACIN
     Indication: Adenocarcinoma
     Route: 065
  4. GLYCOPYRROLATE [Suspect]
     Active Substance: GLYCOPYRROLATE
     Indication: Adenocarcinoma
     Route: 065
  5. METHYLPREDNISOLONE [Suspect]
     Active Substance: METHYLPREDNISOLONE
     Indication: Adenocarcinoma
     Route: 042
  6. DEVICE [Suspect]
     Active Substance: DEVICE
     Route: 065

REACTIONS (4)
  - Drug ineffective [Unknown]
  - Respiratory failure [Unknown]
  - Off label use [Unknown]
  - Rebound effect [Unknown]
